FAERS Safety Report 7074055 (Version 2)
Quarter: 2014Q3

REPORT INFORMATION
  Report Type: Spontaneous
  Country: US (occurrence: None)
  Receive Date: 20090724
  Receipt Date: 20140702
  Transmission Date: 20150326
  Serious: Yes (Other)
  Sender: FDA-Public Use
  Company Number: 2009S1005570

PATIENT
  Age: 74 Year
  Sex: Female
  Weight: 69 kg

DRUGS (6)
  1. SIMETHICONE [Suspect]
     Active Substance: DIMETHICONE\SILICON DIOXIDE\SIMETHICONE
     Indication: COLONOSCOPY
     Route: 048
  2. HYDROCHLOROTHIAZIDE (HYDROCHLOROTHIAZIDE) [Concomitant]
     Active Substance: HYDROCHLOROTHIAZIDE
  3. SYNTHROID [Concomitant]
     Active Substance: LEVOTHYROXINE SODIUM
  4. LISINOPRIL (LISINOPRIL) [Concomitant]
     Active Substance: LISINOPRIL
  5. PHOSPHO-SODA [Suspect]
     Active Substance: SODIUM PHOSPHATE, DIBASIC\SODIUM PHOSPHATE, MONOBASIC
     Indication: COLONOSCOPY
     Route: 048
     Dates: start: 20060129, end: 20060129
  6. METOPROLOL (METOPROLOL) [Concomitant]
     Active Substance: METOPROLOL

REACTIONS (7)
  - Dizziness [None]
  - Feeling abnormal [None]
  - Malaise [None]
  - Renal failure acute [None]
  - Urine output decreased [None]
  - Asthenia [None]
  - Weight decreased [None]

NARRATIVE: CASE EVENT DATE: 20060221
